FAERS Safety Report 6830633-4 (Version None)
Quarter: 2010Q3

REPORT INFORMATION
  Report Type: 
  Country: None (occurrence: None)
  Receive Date: 20100712
  Receipt Date: 20100702
  Transmission Date: 20110219
  Serious: Yes (Other)
  Sender: FDA-Public Use
  Company Number: US-BAXTER-2010BH014408

PATIENT
  Age: 21 Year
  Sex: Male
  Weight: 52 kg

DRUGS (4)
  1. GAMMAGARD LIQUID [Suspect]
     Indication: IMMUNODEFICIENCY COMMON VARIABLE
     Route: 042
     Dates: start: 20070404
  2. GAMMAGARD LIQUID [Suspect]
     Indication: PRIMARY IMMUNODEFICIENCY SYNDROME
     Route: 042
     Dates: start: 20070404
  3. GAMMAGARD LIQUID [Suspect]
     Route: 042
     Dates: start: 20100521, end: 20100521
  4. GAMMAGARD LIQUID [Suspect]
     Route: 042
     Dates: start: 20100521, end: 20100521

REACTIONS (1)
  - URTICARIA [None]
